FAERS Safety Report 6801164-2 (Version None)
Quarter: 2010Q2

REPORT INFORMATION
  Report Type: 
  Country: None (occurrence: None)
  Receive Date: 20100629
  Receipt Date: 20100623
  Transmission Date: 20101027
  Serious: Yes (Other)
  Sender: FDA-Public Use
  Company Number: DE-PFIZER INC-2010078060

PATIENT
  Sex: Female

DRUGS (2)
  1. AROMASIN [Suspect]
  2. ALENDRONIC ACID [Suspect]

REACTIONS (1)
  - OSTEITIS [None]
